FAERS Safety Report 5387035-X (Version None)
Quarter: 2007Q3

REPORT INFORMATION
  Report Type: 
  Country: None (occurrence: None)
  Receive Date: 20070713
  Receipt Date: 20070703
  Transmission Date: 20080115
  Serious: Yes (Other)
  Sender: FDA-Public Use
  Company Number: US-ABBOTT-07P-163-0373592-00

PATIENT
  Sex: Female
  Weight: 63.56 kg

DRUGS (19)
  1. HUMIRA [Suspect]
     Indication: CROHN'S DISEASE
     Route: 058
     Dates: start: 20070625
  2. HUMIRA [Suspect]
     Dosage: PEN
     Route: 058
     Dates: start: 20070525, end: 20070608
  3. HUMIRA [Suspect]
     Dosage: PEN
     Route: 058
     Dates: start: 20070608, end: 20070625
  4. AZATHIOPRINE [Concomitant]
     Indication: CROHN'S DISEASE
     Route: 048
  5. ESOMEPRAZOLE MAGNESIUM [Concomitant]
     Indication: GASTROOESOPHAGEAL REFLUX DISEASE
     Route: 048
  6. ATENOLOL [Concomitant]
     Indication: HYPERTENSION
     Route: 048
  7. SPIRONOLACT [Concomitant]
     Indication: DIURETIC THERAPY
     Route: 048
  8. EZETIMIBE [Concomitant]
     Indication: BLOOD CHOLESTEROL
     Route: 048
  9. FLUOXETINE HYDROCHLORIDE [Concomitant]
     Indication: NERVOUSNESS
     Route: 048
  10. POTASSIUM CHLORIDE [Concomitant]
     Indication: MINERAL SUPPLEMENTATION
     Route: 048
  11. TOPIRAMATE [Concomitant]
     Indication: MIGRAINE PROPHYLAXIS
     Route: 048
  12. MONTELUKAST SODIUM [Concomitant]
     Indication: HYPERSENSITIVITY
     Route: 048
  13. ACYCLOVIR [Concomitant]
     Indication: HERPES ZOSTER
     Route: 048
  14. ELETRIPTAN HYDROBROMIDE [Concomitant]
     Indication: MIGRAINE
     Route: 048
  15. FLUTICASONE PROPIONATE [Concomitant]
     Indication: HYPERSENSITIVITY
     Route: 045
  16. CYANOCOBALAMIN-TANNIN COMPLEX [Concomitant]
     Indication: DRUG USE FOR UNKNOWN INDICATION
     Route: 030
  17. CLARITIN-D [Concomitant]
     Indication: HYPERSENSITIVITY
     Route: 048
  18. CALCIUM ASCORBATE [Concomitant]
     Indication: VITAMIN SUPPLEMENTATION
     Route: 048
  19. CITRACAL + D [Concomitant]
     Indication: VITAMIN SUPPLEMENTATION
     Route: 048

REACTIONS (2)
  - ATYPICAL FIBROXANTHOMA [None]
  - MASS [None]
